FAERS Safety Report 10830350 (Version 6)
Quarter: 2016Q3

REPORT INFORMATION
  Report Type: Report from Study
  Country: GB (occurrence: GB)
  Receive Date: 20150219
  Receipt Date: 20160712
  Transmission Date: 20161109
  Serious: Yes (Life-Threatening, Hospitalization, Other)
  Sender: FDA-Public Use
  Company Number: GB-GLAXOSMITHKLINE-GB2015019417

PATIENT
  Age: 67 Year
  Sex: Male
  Weight: 109.2 kg

DRUGS (10)
  1. FRAGMIN [Concomitant]
     Active Substance: DALTEPARIN SODIUM
     Indication: PROPHYLAXIS
     Dosage: 5000 IU, 1D
     Route: 058
     Dates: start: 20150129, end: 20150220
  2. SIMVASTATIN. [Concomitant]
     Active Substance: SIMVASTATIN
     Indication: BLOOD CHOLESTEROL DECREASED
     Dosage: 40 MG, 1D
     Route: 050
     Dates: start: 20150129, end: 20150205
  3. PROPOFOL. [Concomitant]
     Active Substance: PROPOFOL
     Indication: SEDATION
     Dosage: 1 %, CO
     Route: 042
     Dates: start: 20150129, end: 201502
  4. UMECLIDINIUM BR+VILANTEROL TRIFENATATE [Suspect]
     Active Substance: UMECLIDINIUM BROMIDE\VILANTEROL TRIFENATATE
     Indication: CHRONIC OBSTRUCTIVE PULMONARY DISEASE
     Dosage: 1 PUFF(S), QD
     Route: 055
     Dates: start: 20150106, end: 20150128
  5. FRUSEMIDE [Concomitant]
     Active Substance: FUROSEMIDE
     Indication: FLUID RETENTION
     Dosage: 20 MG, QID
     Route: 042
     Dates: start: 20150201, end: 201502
  6. RANITIDINE. [Concomitant]
     Active Substance: RANITIDINE
     Indication: PROPHYLAXIS AGAINST GASTROINTESTINAL ULCER
     Dosage: 50 MG, TID
     Route: 042
     Dates: start: 20150129, end: 20150208
  7. ACTRAPID [Concomitant]
     Active Substance: INSULIN HUMAN
     Indication: TYPE 2 DIABETES MELLITUS
     Dosage: UNK, CO
     Route: 042
     Dates: start: 20150129
  8. CHLORHEXIDINE GEL [Concomitant]
     Indication: DENTAL DISORDER PROPHYLAXIS
     Dosage: UNK
     Route: 061
     Dates: start: 20150129, end: 20150205
  9. NOREPINEPHRINE [Concomitant]
     Active Substance: NOREPINEPHRINE\NOREPINEPHRINE BITARTRATE
     Indication: CARDIOVASCULAR FUNCTION TEST
     Dosage: UNK, CO
     Route: 042
     Dates: start: 20150129
  10. ALFENTANYL [Concomitant]
     Indication: SEDATION
     Dosage: 500 ?G, CO
     Route: 042
     Dates: start: 20150129, end: 201502

REACTIONS (2)
  - Pneumonia [Recovered/Resolved with Sequelae]
  - Chronic obstructive pulmonary disease [Recovered/Resolved]

NARRATIVE: CASE EVENT DATE: 20150117
